FAERS Safety Report 15885698 (Version 1)
Quarter: 2019Q1

REPORT INFORMATION
  Report Type: Spontaneous
  Country: ES (occurrence: ES)
  Receive Date: 20190129
  Receipt Date: 20190129
  Transmission Date: 20190417
  Serious: Yes (Hospitalization)
  Sender: FDA-Public Use
  Company Number: ES-MYLANLABS-2019M1007521

PATIENT
  Age: 29 Year
  Sex: Male

DRUGS (3)
  1. HYDROCORTISONE. [Suspect]
     Active Substance: HYDROCORTISONE
     Indication: ADRENOGENITAL SYNDROME
     Dosage: 10-15 MG/M2/DAY, IN THREE DAILY DOSES, SINCE BIRTH
     Route: 065
  2. SODIUM CHLORIDE. [Suspect]
     Active Substance: SODIUM CHLORIDE
     Indication: HYPONATRAEMIA
     Dosage: NOT MORE THAN 8 MMOL/L PER DAY
     Route: 042
  3. RISPERIDONE. [Suspect]
     Active Substance: RISPERIDONE
     Indication: DISORIENTATION
     Route: 065

REACTIONS (4)
  - Inappropriate antidiuretic hormone secretion [Recovering/Resolving]
  - Osmotic demyelination syndrome [Recovering/Resolving]
  - Disorientation [Recovered/Resolved]
  - Delusion [Recovered/Resolved]
